FAERS Safety Report 8117931-1 (Version None)
Quarter: 2012Q1

REPORT INFORMATION
  Report Type: 
  Country: None (occurrence: None)
  Receive Date: 20120201
  Receipt Date: 20120116
  Transmission Date: 20120608
  Serious: Yes (Congenital Anomaly)
  Sender: FDA-Public Use
  Company Number: 1174822

PATIENT
  Age: 4 Week
  Sex: Female

DRUGS (3)
  1. FOLIC ACID [Concomitant]
  2. METHOTREXATE [Suspect]
     Dosage: TRANSPLACENTAL
     Route: 064
  3. HYDROXYCHLOROQUINE SULFATE [Suspect]
     Dosage: TRANSPLACENTAL

REACTIONS (2)
  - ANTERIOR CHAMBER CLEAVAGE SYNDROME [None]
  - MATERNAL DRUGS AFFECTING FOETUS [None]
